FAERS Safety Report 23162169 (Version 1)
Quarter: 2023Q4

REPORT INFORMATION
  Report Type: Spontaneous
  Country: US (occurrence: US)
  Receive Date: 20231109
  Receipt Date: 20231109
  Transmission Date: 20240110
  Serious: Yes (Hospitalization, Other)
  Sender: FDA-Public Use
  Company Number: US-CIPLA LTD.-2023US06900

PATIENT

DRUGS (1)
  1. LENALIDOMIDE [Suspect]
     Active Substance: LENALIDOMIDE
     Indication: Product used for unknown indication
     Dosage: UNK, 10 MILLIGRAM
     Route: 065
     Dates: start: 200211

REACTIONS (2)
  - Volvulus [Unknown]
  - Adverse event [Unknown]

NARRATIVE: CASE EVENT DATE: 20231030
